FAERS Safety Report 7343229-5 (Version None)
Quarter: 2011Q1

REPORT INFORMATION
  Report Type: 
  Country: None (occurrence: None)
  Receive Date: 20110310
  Receipt Date: 20110228
  Transmission Date: 20110831
  Serious: Yes (Hospitalization)
  Sender: FDA-Public Use
  Company Number: US-BAXTER-2011BH004627

PATIENT
  Age: 37 Year
  Sex: Female

DRUGS (2)
  1. DIANEAL [Suspect]
     Indication: PERITONEAL DIALYSIS
     Route: 033
     Dates: start: 20110101
  2. DIANEAL [Suspect]
     Route: 033
     Dates: end: 20110209

REACTIONS (3)
  - CARDIAC FAILURE CONGESTIVE [None]
  - CATHETER SITE INFECTION [None]
  - DRUG INEFFECTIVE [None]
